FAERS Safety Report 5638702-1 (Version None)
Quarter: 2008Q1

REPORT INFORMATION
  Report Type: 
  Country: None (occurrence: None)
  Receive Date: 20080226
  Receipt Date: 20071127
  Transmission Date: 20080703
  Serious: No
  Sender: FDA-Public Use
  Company Number: A0696069A

PATIENT
  Age: 54 Year
  Sex: Male

DRUGS (10)
  1. IMITREX [Suspect]
     Indication: MIGRAINE
     Dosage: 6MG AS REQUIRED
     Route: 058
  2. BECLOVENT [Concomitant]
  3. VICODIN [Concomitant]
  4. DIAZEPAM [Concomitant]
  5. PROPRANOLOL [Concomitant]
     Dosage: 60MG PER DAY
     Dates: start: 20071101
  6. LOVASTATIN [Concomitant]
  7. TOPAMAX [Concomitant]
  8. OMEPRAZOLE [Concomitant]
  9. VERAPAMIL [Concomitant]
     Dosage: 480MG PER DAY
  10. IMITREX [Concomitant]
     Dosage: 100MG UNKNOWN
     Route: 048

REACTIONS (4)
  - DEPRESSED MOOD [None]
  - DRUG INEFFECTIVE [None]
  - HEART RATE INCREASED [None]
  - INJECTION SITE HAEMORRHAGE [None]
